FAERS Safety Report 15229858 (Version 1)
Quarter: 2018Q3

REPORT INFORMATION
  Report Type: Spontaneous
  Country: US (occurrence: US)
  Receive Date: 20180802
  Receipt Date: 20180802
  Transmission Date: 20181010
  Serious: Yes (Other)
  Sender: FDA-Public Use
  Company Number: US-ACCORD-061792

PATIENT
  Age: 62 Year
  Sex: Female
  Weight: 71.67 kg

DRUGS (8)
  1. CALCIUM CARBONATE/COLECALCIFEROL [Concomitant]
     Indication: VITAMIN D DEFICIENCY
     Dosage: HIGH DOSE, CALCIUM CARBONATENITAMIN D3
     Route: 048
     Dates: start: 20150729
  2. HERCEPTIN [Concomitant]
     Active Substance: TRASTUZUMAB
     Dosage: COMPLETED Q.3 WEEK FOR TOTAL OF 1 YEAR
  3. ATIVAN [Concomitant]
     Active Substance: LORAZEPAM
     Dosage: STRENGTH: 1 MG TABLET
     Route: 048
  4. CARBOPLATIN. [Concomitant]
     Active Substance: CARBOPLATIN
     Dates: start: 20141028, end: 20150210
  5. DOCETAXEL ACCORD [Suspect]
     Active Substance: DOCETAXEL
     Indication: BREAST CANCER STAGE III
     Route: 042
     Dates: start: 20141028, end: 20150210
  6. PERJETA [Concomitant]
     Active Substance: PERTUZUMAB
     Dosage: X6 CYCLES
  7. CELEXA [Concomitant]
     Active Substance: CITALOPRAM HYDROBROMIDE
     Dosage: STRENGTH: 20 MG TABLET
     Route: 048
  8. IMODIUM [Concomitant]
     Active Substance: LOPERAMIDE HYDROCHLORIDE

REACTIONS (4)
  - Abdominal pain [Unknown]
  - Neuropathy peripheral [Unknown]
  - Diarrhoea [Unknown]
  - Alopecia [Unknown]
